FAERS Safety Report 24804163 (Version 1)
Quarter: 2025Q1

REPORT INFORMATION
  Report Type: Spontaneous
  Country: CA (occurrence: CA)
  Receive Date: 20250103
  Receipt Date: 20250103
  Transmission Date: 20250409
  Serious: Yes (Hospitalization)
  Sender: ORGANON
  Company Number: CA-ORGANON-O2412CAN002841

PATIENT
  Age: 82 Year
  Sex: Female
  Weight: 49 kg

DRUGS (12)
  1. REMERON [Suspect]
     Active Substance: MIRTAZAPINE
     Indication: Sleep disorder
     Dosage: 7.5 MILLIGRAM, 1 EVERY 1 DAYS
     Route: 048
  2. AZILECT [RASAGILINE] [Concomitant]
     Route: 065
  3. CALCIUM CARBONATE [Concomitant]
     Active Substance: CALCIUM CARBONATE
     Route: 065
  4. FISH OIL [Concomitant]
     Active Substance: FISH OIL
     Route: 065
  5. POLYETHYLENE GLYCOLS [Concomitant]
     Active Substance: POLYETHYLENE GLYCOLS
     Route: 065
  6. PROLIA [Concomitant]
     Active Substance: DENOSUMAB
     Route: 065
  7. SENOKOT [Concomitant]
     Active Substance: SENNOSIDES
     Route: 065
  8. SINEMET [Concomitant]
     Active Substance: CARBIDOPA\LEVODOPA
     Route: 065
  9. COBAMAMIDE [Concomitant]
     Active Substance: COBAMAMIDE
     Route: 065
  10. VITAMIN C [Concomitant]
     Active Substance: ASCORBIC ACID
     Route: 065
  11. VITAMIN D3 [Concomitant]
     Active Substance: CHOLECALCIFEROL
     Route: 065
  12. XALATAN [Concomitant]
     Active Substance: LATANOPROST
     Route: 065

REACTIONS (1)
  - Sinus node dysfunction [Recovered/Resolved]
